FAERS Safety Report 14343200 (Version 1)
Quarter: 2017Q4

REPORT INFORMATION
  Report Type: Spontaneous
  Country: US (occurrence: US)
  Receive Date: 20171229
  Receipt Date: 20171229
  Transmission Date: 20180321
  Serious: Yes (Hospitalization)
  Sender: FDA-Public Use
  Company Number: None

PATIENT
  Age: 50 Year
  Sex: Male
  Weight: 101 kg

DRUGS (1)
  1. HURRICANE SPRAY [Suspect]
     Active Substance: BENZOCAINE
     Indication: COUGH

REACTIONS (2)
  - Hypoxia [None]
  - Cyanosis [None]

NARRATIVE: CASE EVENT DATE: 20171227
